FAERS Safety Report 12957933 (Version 1)
Quarter: 2016Q4

REPORT INFORMATION
  Report Type: Other
  Country: IT (occurrence: IT)
  Receive Date: 20161118
  Receipt Date: 20161118
  Transmission Date: 20170207
  Serious: Yes (Hospitalization)
  Sender: FDA-Public Use
  Company Number: IT--2016-IT-000003

PATIENT
  Age: 67 Year
  Sex: Male

DRUGS (1)
  1. LOSARTAN POTASSIUM TABLETS USP, 50 MG (VIVIMED) [Suspect]
     Active Substance: LOSARTAN POTASSIUM
     Indication: PRODUCT USED FOR UNKNOWN INDICATION
     Dosage: 50MG DAILY

REACTIONS (1)
  - Coeliac disease [Recovered/Resolved]
